FAERS Safety Report 10791820 (Version 1)
Quarter: 2015Q1

REPORT INFORMATION
  Report Type: Spontaneous
  Country: US (occurrence: US)
  Receive Date: 20150213
  Receipt Date: 20150213
  Transmission Date: 20150721
  Serious: No
  Sender: FDA-Public Use
  Company Number: US-GLAXOSMITHKLINE-A1060678A

PATIENT

DRUGS (5)
  1. VITAMIN D [Concomitant]
     Active Substance: CHOLECALCIFEROL
  2. MULTIVITAMIN [Concomitant]
     Active Substance: VITAMINS
  3. XOPENEX NEBULES [Concomitant]
  4. LAMICTAL [Suspect]
     Active Substance: LAMOTRIGINE
     Indication: SEIZURE
     Route: 048
     Dates: start: 201303
  5. VITAMIN B6 [Concomitant]
     Active Substance: PYRIDOXINE HYDROCHLORIDE

REACTIONS (6)
  - Eye irritation [Unknown]
  - Drug administration error [Unknown]
  - Trichotillomania [Unknown]
  - Visual impairment [Not Recovered/Not Resolved]
  - Vision blurred [Unknown]
  - Metamorphopsia [Unknown]

NARRATIVE: CASE EVENT DATE: 201308
